FAERS Safety Report 4713932-1 (Version None)
Quarter: 2005Q3

REPORT INFORMATION
  Report Type: 
  Country: None (occurrence: None)
  Receive Date: 20050713
  Receipt Date: 20050627
  Transmission Date: 20060218
  Serious: Yes (Hospitalization)
  Sender: FDA-Public Use
  Company Number: EWC050644344

PATIENT
  Age: 75 Year
  Sex: Female

DRUGS (2)
  1. HUMALOG [Suspect]
     Dosage: 38 IU DAY
  2. HUMULIN N [Suspect]
     Dosage: 48 IU DAY

REACTIONS (11)
  - BLOOD GLUCOSE FLUCTUATION [None]
  - CARDIAC DISORDER [None]
  - CARDIOMEGALY [None]
  - CHOLELITHIASIS [None]
  - DISCOMFORT [None]
  - DRUG INEFFECTIVE [None]
  - FEAR OF DISEASE [None]
  - FEELING ABNORMAL [None]
  - HEPATOMEGALY [None]
  - LIVER DISORDER [None]
  - PHARMACEUTICAL PRODUCT COMPLAINT [None]
